FAERS Safety Report 7450391-2 (Version None)
Quarter: 2011Q1

REPORT INFORMATION
  Report Type: 
  Country: None (occurrence: None)
  Receive Date: 20110302
  Receipt Date: 20110113
  Transmission Date: 20110831
  Serious: No
  Sender: FDA-Public Use
  Company Number: 023381

PATIENT
  Sex: Female
  Weight: 52.1 kg

DRUGS (10)
  1. ACETAMINOPHEN [Concomitant]
  2. PENTASA [Concomitant]
  3. LANSOPRAZOLE [Concomitant]
  4. TRAZODONE HCL [Concomitant]
  5. MULTI-VITAMINS [Concomitant]
  6. HYDROXYCHLOROQUINE [Concomitant]
  7. CIMZIA [Suspect]
     Indication: CROHN'S DISEASE
     Dosage: 400 MG 1X/MONTH SUBCUTANEOUS
     Route: 058
     Dates: start: 20101110
  8. LEXAPRO [Concomitant]
  9. WELLBUTRIN [Concomitant]
  10. ZYRTEC [Concomitant]

REACTIONS (2)
  - BLOOD IRON DECREASED [None]
  - GASTROENTERITIS VIRAL [None]
